FAERS Safety Report 14965457 (Version 1)
Quarter: 2018Q2

REPORT INFORMATION
  Report Type: Spontaneous
  Country: GE (occurrence: GE)
  Receive Date: 20180601
  Receipt Date: 20180601
  Transmission Date: 20180711
  Serious: Yes (Hospitalization, Other)
  Sender: FDA-Public Use
  Company Number: GE-FRESENIUS KABI-FK201806295

PATIENT
  Age: 53 Year
  Sex: Male
  Weight: 68 kg

DRUGS (17)
  1. KANAMYCIN [Suspect]
     Active Substance: KANAMYCIN\KANAMYCIN A SULFATE
     Indication: TUBERCULOSIS
     Route: 030
     Dates: start: 20170503, end: 20171213
  2. LINEZOLID. [Suspect]
     Active Substance: LINEZOLID
     Route: 048
     Dates: start: 20170428, end: 20170502
  3. CYCLOSERINE. [Suspect]
     Active Substance: CYCLOSERINE
     Indication: TUBERCULOSIS
     Route: 048
     Dates: start: 20170302, end: 20170320
  4. PROTIONAMIDE [Suspect]
     Active Substance: PROTIONAMIDE
     Indication: TUBERCULOSIS
     Route: 048
     Dates: start: 20170302, end: 20170320
  5. CLOFAZIMINE [Suspect]
     Active Substance: CLOFAZIMINE
     Indication: TUBERCULOSIS
     Route: 048
     Dates: start: 20170508, end: 20171213
  6. DELAMANID [Suspect]
     Active Substance: DELAMANID
     Route: 048
     Dates: start: 20170428, end: 20171013
  7. CAPREOMYCIN [Suspect]
     Active Substance: CAPREOMYCIN
     Route: 030
     Dates: start: 20170424, end: 20170426
  8. CYCLOSERINE. [Suspect]
     Active Substance: CYCLOSERINE
     Route: 048
     Dates: start: 20170608, end: 20171213
  9. AMINOSALICYLIC ACID [Suspect]
     Active Substance: AMINOSALICYLIC ACID
     Route: 065
     Dates: start: 20170427
  10. LINEZOLID. [Suspect]
     Active Substance: LINEZOLID
     Indication: TUBERCULOSIS
     Route: 048
     Dates: start: 20170302, end: 20170320
  11. CAPREOMYCIN [Suspect]
     Active Substance: CAPREOMYCIN
     Indication: TUBERCULOSIS
     Route: 030
     Dates: start: 20170302, end: 20170320
  12. DELAMANID [Suspect]
     Active Substance: DELAMANID
     Indication: TUBERCULOSIS
     Route: 048
     Dates: start: 20170302, end: 20170320
  13. AMINOSALICYLIC ACID [Suspect]
     Active Substance: AMINOSALICYLIC ACID
     Indication: TUBERCULOSIS
     Route: 065
     Dates: start: 20170426
  14. AMINOSALICYLIC ACID [Suspect]
     Active Substance: AMINOSALICYLIC ACID
     Route: 048
     Dates: start: 20170428, end: 20171213
  15. PYRIDOXINE [Suspect]
     Active Substance: PYRIDOXINE
     Indication: PRODUCT USED FOR UNKNOWN INDICATION
     Route: 048
     Dates: start: 20170303, end: 20171213
  16. DELAMANID [Suspect]
     Active Substance: DELAMANID
     Route: 048
     Dates: start: 20170424, end: 20170427
  17. METFORMIN [Concomitant]
     Active Substance: METFORMIN HYDROCHLORIDE
     Indication: PRODUCT USED FOR UNKNOWN INDICATION
     Route: 065

REACTIONS (2)
  - Gastritis [Recovering/Resolving]
  - Peptic ulcer [Recovering/Resolving]

NARRATIVE: CASE EVENT DATE: 20171201
